FAERS Safety Report 9918222 (Version 2)
Quarter: 2014Q1

REPORT INFORMATION
  Report Type: Report from Study
  Country: GB (occurrence: GB)
  Receive Date: 20140224
  Receipt Date: 20140324
  Transmission Date: 20141002
  Serious: Yes (Death, Other)
  Sender: FDA-Public Use
  Company Number: GB-ROCHE-1354038

PATIENT
  Sex: Female
  Weight: 79 kg

DRUGS (9)
  1. TOCILIZUMAB [Suspect]
     Indication: RHEUMATOID ARTHRITIS
     Dosage: DATE OF LAST DOSE PRIOR TO SAE IS 21/FEB/2011
     Route: 065
     Dates: start: 20110221
  2. METHOTREXATE [Concomitant]
  3. ADCAL-D3 [Concomitant]
  4. BISOPROLOL [Concomitant]
  5. DULOXETINE [Concomitant]
  6. LANSOPRAZOLE [Concomitant]
  7. PREDNISOLONE [Concomitant]
  8. DIAZEPAM [Concomitant]
     Route: 065
  9. PARACETAMOL [Concomitant]

REACTIONS (2)
  - Bronchopneumonia [Fatal]
  - Dementia [Unknown]
